FAERS Safety Report 7102355-6 (Version None)
Quarter: 2010Q4

REPORT INFORMATION
  Report Type: 
  Country: None (occurrence: None)
  Receive Date: 20101115
  Receipt Date: 20101105
  Transmission Date: 20110411
  Serious: No
  Sender: FDA-Public Use
  Company Number: US-BIOGENIDEC-2010BI039292

PATIENT
  Sex: Male

DRUGS (3)
  1. TYSABRI [Suspect]
     Indication: MULTIPLE SCLEROSIS
     Route: 042
     Dates: start: 20061115, end: 20070209
  2. TYSABRI [Suspect]
     Route: 042
     Dates: start: 20081008, end: 20100603
  3. TYSABRI [Suspect]
     Route: 042
     Dates: start: 20100910

REACTIONS (3)
  - GAIT DISTURBANCE [None]
  - MEMORY IMPAIRMENT [None]
  - MENTAL IMPAIRMENT [None]
